FAERS Safety Report 18909024 (Version 1)
Quarter: 2021Q1

REPORT INFORMATION
  Report Type: Spontaneous
  Country: US (occurrence: US)
  Receive Date: 20210218
  Receipt Date: 20210218
  Transmission Date: 20210420
  Serious: Yes (Other)
  Sender: FDA-Public Use
  Company Number: NVSC2021US035910

PATIENT
  Sex: Male
  Weight: 72 kg

DRUGS (1)
  1. KYMRIAH [Suspect]
     Active Substance: TISAGENLECLEUCEL
     Indication: DIFFUSE LARGE B-CELL LYMPHOMA
     Dosage: 24 ML, ONCE/SINGLE (3.1E8 VIABLE T CELLS)
     Route: 042

REACTIONS (1)
  - Cytopenia [Unknown]
